FAERS Safety Report 21053262 (Version 1)
Quarter: 2022Q3

REPORT INFORMATION
  Report Type: Spontaneous
  Country: MY (occurrence: MY)
  Receive Date: 20220707
  Receipt Date: 20220707
  Transmission Date: 20221026
  Serious: Yes (Other)
  Sender: FDA-Public Use
  Company Number: MY-PFIZER INC-202200923264

PATIENT
  Age: 30 Year
  Sex: Female

DRUGS (1)
  1. PACLITAXEL [Suspect]
     Active Substance: PACLITAXEL
     Indication: Endometrial cancer
     Dosage: 350 MG, DAILY
     Route: 041

REACTIONS (7)
  - Dyspnoea [Recovering/Resolving]
  - Rash [Recovering/Resolving]
  - Somnolence [Recovering/Resolving]
  - Sinus tachycardia [Recovering/Resolving]
  - Tachypnoea [Recovering/Resolving]
  - Oxygen saturation decreased [Recovering/Resolving]
  - Off label use [Unknown]
